FAERS Safety Report 9293616 (Version 1)
Quarter: 2013Q2

REPORT INFORMATION
  Report Type: Spontaneous
  Country: NL (occurrence: NL)
  Receive Date: 20130516
  Receipt Date: 20130516
  Transmission Date: 20140414
  Serious: Yes (Other)
  Sender: FDA-Public Use
  Company Number: NL-ELI_LILLY_AND_COMPANY-NL201305001570

PATIENT
  Sex: Male

DRUGS (1)
  1. STRATTERA [Suspect]
     Dosage: 80 MG, UNKNOWN

REACTIONS (2)
  - Subarachnoid haemorrhage [Unknown]
  - Intracranial aneurysm [Unknown]
